FAERS Safety Report 5670338-9 (Version None)
Quarter: 2008Q1

REPORT INFORMATION
  Report Type: 
  Country: None (occurrence: None)
  Receive Date: 20080314
  Receipt Date: 20080314
  Transmission Date: 20080703
  Serious: No
  Sender: FDA-Public Use
  Company Number: None

PATIENT

DRUGS (1)
  1. AUGMENTIN [Suspect]
     Dosage: 400 MG/5ML

REACTIONS (1)
  - PHARMACEUTICAL PRODUCT COMPLAINT [None]
